FAERS Safety Report 17721196 (Version 2)
Quarter: 2020Q2

REPORT INFORMATION
  Report Type: Report from Study
  Country: None (occurrence: US)
  Receive Date: 20200429
  Receipt Date: 20200602
  Transmission Date: 20200714
  Serious: Yes (Other)
  Sender: FDA-Public Use
  Company Number: US-ABBVIE-20K-163-3326111-00

PATIENT
  Age: 47 Year
  Sex: Female

DRUGS (3)
  1. HUMIRA [Suspect]
     Active Substance: ADALIMUMAB
     Indication: PSORIASIS
     Route: 058
  2. HUMIRA [Suspect]
     Active Substance: ADALIMUMAB
     Indication: PSORIATIC ARTHROPATHY
     Route: 058
     Dates: start: 20200229, end: 2020
  3. HUMIRA [Suspect]
     Active Substance: ADALIMUMAB
     Indication: SYSTEMIC LUPUS ERYTHEMATOSUS
     Route: 058
     Dates: start: 20200319

REACTIONS (30)
  - Musculoskeletal discomfort [Not Recovered/Not Resolved]
  - Therapeutic response unexpected [Recovered/Resolved]
  - Injection site warmth [Recovered/Resolved]
  - Fatigue [Recovered/Resolved]
  - Musculoskeletal pain [Recovering/Resolving]
  - Loss of personal independence in daily activities [Not Recovered/Not Resolved]
  - Joint stiffness [Unknown]
  - Device issue [Unknown]
  - Red blood cell sedimentation rate increased [Not Recovered/Not Resolved]
  - Depression [Unknown]
  - Ear infection [Recovering/Resolving]
  - Injection site bruising [Recovered/Resolved]
  - Headache [Recovered/Resolved]
  - Emotional distress [Unknown]
  - Systemic lupus erythematosus [Unknown]
  - Impaired self-care [Not Recovered/Not Resolved]
  - Joint swelling [Not Recovered/Not Resolved]
  - Discomfort [Not Recovered/Not Resolved]
  - Arthralgia [Not Recovered/Not Resolved]
  - Device issue [Recovered/Resolved]
  - Incorrect dose administered [Unknown]
  - Injection site pain [Recovered/Resolved]
  - Blindness [Unknown]
  - Musculoskeletal stiffness [Recovering/Resolving]
  - Anxiety [Recovering/Resolving]
  - Rash [Not Recovered/Not Resolved]
  - Injection site infection [Recovering/Resolving]
  - Gait disturbance [Not Recovered/Not Resolved]
  - Pain [Recovering/Resolving]
  - Device issue [Unknown]

NARRATIVE: CASE EVENT DATE: 2020
